FAERS Safety Report 5379678-4 (Version None)
Quarter: 2007Q3

REPORT INFORMATION
  Report Type: 
  Country: None (occurrence: None)
  Receive Date: 20070706
  Receipt Date: 20070612
  Transmission Date: 20080115
  Serious: Yes (Other)
  Sender: FDA-Public Use
  Company Number: BR-BAYER-200713464GDS

PATIENT
  Age: 53 Year
  Sex: Male
  Weight: 82 kg

DRUGS (3)
  1. VIVANZA (VARDENAFIL) [Suspect]
     Indication: ERECTILE DYSFUNCTION
     Dosage: UNIT DOSE: 20 MG
     Route: 048
     Dates: start: 20070501, end: 20070501
  2. VIVANZA (VARDENAFIL) [Suspect]
     Dosage: UNIT DOSE: 20 MG
     Route: 048
     Dates: start: 20070501, end: 20070501
  3. VIVANZA (VARDENAFIL) [Suspect]
     Dosage: UNIT DOSE: 20 MG
     Route: 048
     Dates: start: 20070522, end: 20070522

REACTIONS (2)
  - PAIN [None]
  - PENILE HAEMORRHAGE [None]
